FAERS Safety Report 15966563 (Version 5)
Quarter: 2019Q1

REPORT INFORMATION
  Report Type: Spontaneous
  Country: US (occurrence: US)
  Receive Date: 20190215
  Receipt Date: 20190311
  Transmission Date: 20190418
  Serious: Yes (Hospitalization, Other)
  Sender: FDA-Public Use
  Company Number: US-PUMA BIOTECHNOLOGY, LTD.-2019US001451

PATIENT

DRUGS (5)
  1. NERLYNX [Suspect]
     Active Substance: NERATINIB
     Indication: HER-2 POSITIVE BREAST CANCER
     Dosage: 240 MG (6 TABETS), DAILY
     Route: 048
     Dates: start: 201801
  2. LETROZOLE. [Concomitant]
     Active Substance: LETROZOLE
     Indication: PRODUCT USED FOR UNKNOWN INDICATION
  3. NERLYNX [Suspect]
     Active Substance: NERATINIB
     Indication: METASTASES TO LYMPH NODES
     Dosage: 160 MG (4 TABLETS), DAILY
     Route: 048
     Dates: start: 20180215
  4. NERLYNX [Suspect]
     Active Substance: NERATINIB
     Dosage: UNK
     Route: 048
     Dates: end: 20190107
  5. LOMOTIL [Concomitant]
     Active Substance: ATROPINE SULFATE\DIPHENOXYLATE HYDROCHLORIDE
     Indication: PRODUCT USED FOR UNKNOWN INDICATION
     Dosage: 6 TABLETS, DAILY

REACTIONS (11)
  - Urticaria [Unknown]
  - Dermatitis contact [Unknown]
  - Abdominal neoplasm [Unknown]
  - Nausea [Unknown]
  - Drug intolerance [Recovered/Resolved]
  - Appendicitis [Unknown]
  - Diarrhoea [Unknown]
  - Post procedural swelling [Recovering/Resolving]
  - Breast reconstruction [Recovering/Resolving]
  - Procedural pain [Not Recovered/Not Resolved]
  - Drug hypersensitivity [Unknown]

NARRATIVE: CASE EVENT DATE: 2018
